FAERS Safety Report 10217262 (Version 2)
Quarter: 2014Q3

REPORT INFORMATION
  Report Type: Spontaneous
  Country: BR (occurrence: BR)
  Receive Date: 20140604
  Receipt Date: 20140903
  Transmission Date: 20150326
  Serious: Yes (Other)
  Sender: FDA-Public Use
  Company Number: PHHY2014BR068454

PATIENT
  Sex: Female
  Weight: 85 kg

DRUGS (4)
  1. LOSARTAN [Concomitant]
     Active Substance: LOSARTAN
     Indication: BLOOD PRESSURE ABNORMAL
     Dosage: 1 DF, PER DAY
     Route: 048
  2. RIVOTRIL [Concomitant]
     Active Substance: CLONAZEPAM
     Indication: INSOMNIA
     Dosage: 0.5 DF, PER DAY
     Route: 048
  3. ALENIA                             /01538101/ [Concomitant]
     Active Substance: BUDESONIDE\FORMOTEROL FUMARATE
     Indication: BRONCHITIS
     Dosage: 1 DF, SPORADICALLY
     Route: 055
  4. FORASEQ [Suspect]
     Active Substance: BUDESONIDE\FORMOTEROL FUMARATE
     Indication: BRONCHITIS
     Dosage: 1 DF, SPORADICALLY, WHEN THERE WAS A CRISIS
     Route: 055

REACTIONS (4)
  - Overweight [Recovered/Resolved]
  - Thrombosis [Recovered/Resolved]
  - Embolism [Recovered/Resolved]
  - Anaemia [Recovered/Resolved]
